FAERS Safety Report 23521650 (Version 2)
Quarter: 2024Q1

REPORT INFORMATION
  Report Type: Spontaneous
  Country: JP (occurrence: JP)
  Receive Date: 20240214
  Receipt Date: 20240314
  Transmission Date: 20240409
  Serious: Yes (Death, Other)
  Sender: FDA-Public Use
  Company Number: JP-MSD-2402JPN001169J

PATIENT
  Age: 91 Year
  Sex: Male

DRUGS (10)
  1. STROMECTOL [Suspect]
     Active Substance: IVERMECTIN
     Indication: Acarodermatitis
     Dosage: 12 MILLIGRAM, ONCE
     Route: 048
     Dates: start: 20230725, end: 20230725
  2. STROMECTOL [Suspect]
     Active Substance: IVERMECTIN
     Dosage: 12 MILLIGRAM, ONCE
     Route: 048
     Dates: start: 20230802, end: 20230802
  3. STROMECTOL [Suspect]
     Active Substance: IVERMECTIN
     Dosage: 12 MILLIGRAM, ONCE
     Route: 048
     Dates: start: 20230810, end: 20230810
  4. STROMECTOL [Suspect]
     Active Substance: IVERMECTIN
     Dosage: 12 MILLIGRAM, ONCE
     Route: 048
     Dates: start: 20230929, end: 20230929
  5. STROMECTOL [Suspect]
     Active Substance: IVERMECTIN
     Dosage: 12 MILLIGRAM, ONCE
     Route: 048
     Dates: start: 20231010, end: 20231010
  6. STROMECTOL [Suspect]
     Active Substance: IVERMECTIN
     Dosage: 12 MILLIGRAM, ONCE
     Route: 048
     Dates: start: 20231020, end: 20231020
  7. STROMECTOL [Suspect]
     Active Substance: IVERMECTIN
     Dosage: 12 MILLIGRAM, ONCE
     Route: 048
     Dates: start: 20231030, end: 20231030
  8. STROMECTOL [Suspect]
     Active Substance: IVERMECTIN
     Dosage: 12 MILLIGRAM, ONCE
     Route: 048
     Dates: start: 20231110, end: 20231110
  9. STROMECTOL [Suspect]
     Active Substance: IVERMECTIN
     Dosage: 12 MILLIGRAM, ONCE
     Route: 048
     Dates: start: 20240110, end: 20240110
  10. STROMECTOL [Suspect]
     Active Substance: IVERMECTIN
     Dosage: 12 MILLIGRAM, ONCE
     Route: 048
     Dates: start: 20240120, end: 20240120

REACTIONS (2)
  - Death [Fatal]
  - Inappropriate schedule of product administration [Unknown]

NARRATIVE: CASE EVENT DATE: 20230810
